FAERS Safety Report 23722306 (Version 1)
Quarter: 2024Q2

REPORT INFORMATION
  Report Type: Spontaneous
  Country: US (occurrence: None)
  Receive Date: 20240408
  Receipt Date: 20240408
  Transmission Date: 20240716
  Serious: Yes (Other)
  Sender: FDA-Public Use
  Company Number: None

PATIENT
  Age: 65 Year
  Sex: Male
  Weight: 63.9 kg

DRUGS (26)
  1. SPRAVATO [Suspect]
     Active Substance: ESKETAMINE
     Indication: Major depression
     Dosage: OTHER QUANTITY : 3 INHALATION(S)?OTHER FREQUENCY : 3 INHALATIONS?
     Route: 055
     Dates: start: 20240325, end: 20240405
  2. SPRAVATO [Suspect]
     Active Substance: ESKETAMINE
     Indication: Anxiety
  3. LOSARTAN [Concomitant]
     Active Substance: LOSARTAN
  4. ATORVASTATIN [Concomitant]
  5. BUSPIRONE [Concomitant]
  6. LINZESS [Concomitant]
     Active Substance: LINACLOTIDE
  7. TAMSULOSIN HYDROCHLORIDE [Concomitant]
     Active Substance: TAMSULOSIN HYDROCHLORIDE
  8. CYCLOSPORINE [Concomitant]
     Active Substance: CYCLOSPORINE
  9. ASPIRIN [Concomitant]
  10. GABAPENTIN [Concomitant]
     Active Substance: GABAPENTIN
  11. TESTOSTERONE [Concomitant]
     Active Substance: TESTOSTERONE
  12. BUPROPION [Concomitant]
     Active Substance: BUPROPION
  13. LORAZEPAM [Concomitant]
     Active Substance: LORAZEPAM
  14. MIRTAZAPINE [Concomitant]
     Active Substance: MIRTAZAPINE
  15. TOPIRAMATE [Concomitant]
     Active Substance: TOPIRAMATE
  16. FLUTICASONE PROPIONATE [Concomitant]
     Active Substance: FLUTICASONE PROPIONATE
  17. ACELASTINE [Concomitant]
  18. METRONIDAZOLE [Concomitant]
     Active Substance: METRONIDAZOLE
  19. TRETINOIN [Concomitant]
     Active Substance: TRETINOIN
  20. DICLOFENAC SODIUM [Concomitant]
     Active Substance: DICLOFENAC\DICLOFENAC SODIUM
  21. TIZANIDINE HYDROCHLORIDE [Concomitant]
     Active Substance: TIZANIDINE HYDROCHLORIDE
  22. ACYCLOVIR [Concomitant]
     Active Substance: ACYCLOVIR
  23. ALLERGY IMUNO INJECTIONS [Concomitant]
  24. TYLENOL [Concomitant]
  25. CENTUM SILVER [Concomitant]
  26. METAMUCIL FIBER POWDER [Concomitant]

REACTIONS (2)
  - Hypertensive emergency [None]
  - Incorrect dose administered [None]

NARRATIVE: CASE EVENT DATE: 20240405
